FAERS Safety Report 8131728-8 (Version None)
Quarter: 2012Q1

REPORT INFORMATION
  Report Type: 
  Country: None (occurrence: None)
  Receive Date: 20120208
  Receipt Date: 20120130
  Transmission Date: 20120608
  Serious: Yes (Hospitalization)
  Sender: FDA-Public Use
  Company Number: 2012010179

PATIENT
  Age: 51 Year
  Sex: Female
  Weight: 90.7194 kg

DRUGS (2)
  1. FELBATOL [Suspect]
     Indication: CONVULSION
     Dosage: 1200 MG (600 MG, 2 IN 1 D), ORAL
     Route: 048
     Dates: start: 19920101, end: 20111101
  2. DEPAKOTE [Suspect]
     Indication: CONVULSION
     Dosage: 1000 MG (500 MG, 2 IN 1 D), ORAL
     Route: 048
     Dates: start: 19920101, end: 20111001

REACTIONS (4)
  - CONDITION AGGRAVATED [None]
  - CONVULSION [None]
  - TREATMENT NONCOMPLIANCE [None]
  - REFUSAL OF TREATMENT BY PATIENT [None]
